FAERS Safety Report 10086295 (Version 1)
Quarter: 2014Q2

REPORT INFORMATION
  Report Type: Spontaneous
  Country: US (occurrence: None)
  Receive Date: 20140416
  Receipt Date: 20140416
  Transmission Date: 20141212
  Serious: Yes (Death, Hospitalization)
  Sender: FDA-Public Use
  Company Number: QSC-2014-0233

PATIENT
  Age: 54 Year
  Sex: Male

DRUGS (1)
  1. H.P ACTHAR GEL [Suspect]
     Indication: NEPHROTIC SYNDROME
     Dates: start: 201307

REACTIONS (3)
  - Cardiac failure [None]
  - Pneumonia [None]
  - Weight increased [None]
